FAERS Safety Report 15154050 (Version 2)
Quarter: 2018Q3

REPORT INFORMATION
  Report Type: Spontaneous
  Country: US (occurrence: US)
  Receive Date: 20180717
  Receipt Date: 20180719
  Transmission Date: 20181010
  Serious: No
  Sender: FDA-Public Use
  Company Number: US-PFIZER INC-2018285405

PATIENT
  Age: 59 Year
  Sex: Male

DRUGS (5)
  1. PREDNISONE. [Concomitant]
     Active Substance: PREDNISONE
     Dosage: 2 DF, UNK (2 TABLETS FOR 2 DAYS)
  2. PREDNISONE. [Concomitant]
     Active Substance: PREDNISONE
     Dosage: 60 MG, UNK (20 MG BOTH TIMES AND TAKE 3 CAPSULES FOR 2 DAYS)
  3. DILANTIN [Suspect]
     Active Substance: PHENYTOIN
     Dosage: 600 MG, DAILY (HE TAKES SIX 100MG CAPSULES) (3 IN THE MORNING AND 3 AT NIGHT.)
     Route: 048
  4. PREDNISONE. [Concomitant]
     Active Substance: PREDNISONE
     Dosage: 1 DF, UNK (ONE TABLET FOR ONE DAY)
  5. DILANTIN [Suspect]
     Active Substance: PHENYTOIN
     Dosage: 100 MG, 1X/DAY (QD)

REACTIONS (2)
  - Parosmia [Unknown]
  - Dysgeusia [Unknown]
